FAERS Safety Report 5383337-1 (Version None)
Quarter: 2007Q3

REPORT INFORMATION
  Report Type: 
  Country: None (occurrence: None)
  Receive Date: 20070710
  Receipt Date: 20070703
  Transmission Date: 20080115
  Serious: Yes (Hospitalization)
  Sender: FDA-Public Use
  Company Number: US-GENENTECH-243948

PATIENT
  Age: 13 Month
  Sex: Female

DRUGS (4)
  1. SOMATROPIN [Suspect]
     Indication: TRISOMY 18
     Dosage: 0.3 MG, QD
     Route: 058
     Dates: start: 20060512
  2. PREVACID [Concomitant]
     Indication: DRUG USE FOR UNKNOWN INDICATION
     Dosage: 1 CAPFUL, QD
     Route: 048
  3. GLYCERIN SUPPOSITORY [Concomitant]
     Indication: DRUG USE FOR UNKNOWN INDICATION
     Dosage: 1 UNK, PRN
     Route: 054
  4. MIRALAX [Concomitant]
     Indication: DRUG USE FOR UNKNOWN INDICATION
     Dosage: UNK TSP, PRN
     Route: 048

REACTIONS (1)
  - PNEUMONIA [None]
